FAERS Safety Report 13714519 (Version 2)
Quarter: 2017Q3

REPORT INFORMATION
  Report Type: Spontaneous
  Country: JP (occurrence: JP)
  Receive Date: 20170704
  Receipt Date: 20170706
  Transmission Date: 20171127
  Serious: Yes (Life-Threatening, Hospitalization, Other)
  Sender: FDA-Public Use
  Company Number: JP-TAKEDA-2017TUS014296

PATIENT
  Age: 73 Year
  Sex: Male
  Weight: 56.8 kg

DRUGS (4)
  1. LOSARHYD [Suspect]
     Active Substance: HYDROCHLOROTHIAZIDE\LOSARTAN POTASSIUM
     Indication: HYPERTENSION
     Dosage: UNK
     Route: 048
  2. GASLON [Suspect]
     Active Substance: IRSOGLADINE MALEATE
     Indication: GASTRITIS
     Dosage: UNK
     Route: 048
  3. BENIDIPINE HYDROCHLORIDE [Suspect]
     Active Substance: BENIDIPINE HYDROCHLORIDE
     Indication: HYPERTENSION
     Dosage: UNK
     Route: 048
     Dates: start: 20150416
  4. FEBURIC [Suspect]
     Active Substance: FEBUXOSTAT
     Indication: HYPERURICAEMIA
     Dosage: UNK UNK, QD
     Route: 048

REACTIONS (1)
  - Nasopharyngeal cancer [Unknown]

NARRATIVE: CASE EVENT DATE: 20160715
